FAERS Safety Report 9836472 (Version 10)
Quarter: 2015Q1

REPORT INFORMATION
  Report Type: Report from Study
  Country: US (occurrence: US)
  Receive Date: 20140123
  Receipt Date: 20150218
  Transmission Date: 20150721
  Serious: Yes (Hospitalization, Other)
  Sender: FDA-Public Use
  Company Number: US-ALEXION PHARMACEUTICALS INC.-A201400162

PATIENT

DRUGS (3)
  1. SOLIRIS [Suspect]
     Active Substance: ECULIZUMAB
     Indication: PAROXYSMAL NOCTURNAL HAEMOGLOBINURIA
     Dosage: 900 MG, Q2W
     Route: 042
     Dates: start: 20130222
  2. AMIODARONE                         /00133102/ [Concomitant]
     Active Substance: AMIODARONE
     Indication: PRODUCT USED FOR UNKNOWN INDICATION
     Dosage: UNK
     Route: 065
     Dates: start: 20130122
  3. VERAPAMIL [Concomitant]
     Active Substance: VERAPAMIL HYDROCHLORIDE
     Indication: HYPERTENSION
     Dosage: UNK
     Route: 065
     Dates: start: 20130222

REACTIONS (17)
  - Dialysis [Unknown]
  - Platelet count decreased [Not Recovered/Not Resolved]
  - Blood count abnormal [Unknown]
  - Bone marrow failure [Unknown]
  - Device related infection [Recovered/Resolved]
  - Dialysis [Unknown]
  - Vaginal haemorrhage [Unknown]
  - Aplastic anaemia [Unknown]
  - Renal failure [Unknown]
  - Dialysis device insertion [Not Recovered/Not Resolved]
  - Myelodysplastic syndrome [Unknown]
  - Rectal haemorrhage [Unknown]
  - Gallbladder disorder [Unknown]
  - Failure to thrive [Unknown]
  - Haemodialysis [Not Recovered/Not Resolved]
  - Unevaluable event [Unknown]
  - Condition aggravated [Unknown]

NARRATIVE: CASE EVENT DATE: 20140114
